FAERS Safety Report 4781902-3 (Version None)
Quarter: 2005Q3

REPORT INFORMATION
  Report Type: 
  Country: None (occurrence: None)
  Receive Date: 20050927
  Receipt Date: 20050916
  Transmission Date: 20060218
  Serious: Yes (Death)
  Sender: FDA-Public Use
  Company Number: 2005129817

PATIENT
  Age: 25 Year
  Sex: Female

DRUGS (2)
  1. XANAX [Suspect]
     Indication: ILL-DEFINED DISORDER
  2. METHADONE (METHADONE) [Suspect]
     Indication: ILL-DEFINED DISORDER

REACTIONS (1)
  - MULTIPLE DRUG OVERDOSE [None]
